FAERS Safety Report 19750696 (Version 1)
Quarter: 2021Q3

REPORT INFORMATION
  Report Type: Spontaneous
  Country: FR (occurrence: FR)
  Receive Date: 20210826
  Receipt Date: 20210826
  Transmission Date: 20211014
  Serious: Yes (Hospitalization)
  Sender: FDA-Public Use
  Company Number: FR-MYLANLABS-2021M1055090

PATIENT
  Age: 87 Year
  Sex: Female
  Weight: 56 kg

DRUGS (2)
  1. CLINDAMYCINE MYLAN 300 MG, CAPSULES [Suspect]
     Active Substance: CLINDAMYCIN
     Indication: ABSCESS
     Dosage: 1800 MILLIGRAM, QD
     Route: 048
     Dates: start: 20210210, end: 20210216
  2. RIFADINE                           /00146902/ [Suspect]
     Active Substance: RIFAMPIN SODIUM
     Indication: ABSCESS
     Dosage: 1200 MILLIGRAM, QD
     Route: 048
     Dates: start: 20210210, end: 20210219

REACTIONS (2)
  - Jaundice [Recovered/Resolved]
  - Cholestasis [Recovered/Resolved]

NARRATIVE: CASE EVENT DATE: 20210216
